FAERS Safety Report 8439762-5 (Version None)
Quarter: 2012Q2

REPORT INFORMATION
  Report Type: 
  Country: None (occurrence: None)
  Receive Date: 20120615
  Receipt Date: 20110502
  Transmission Date: 20120825
  Serious: Yes (Hospitalization)
  Sender: FDA-Public Use
  Company Number: US-NOVOPROD-322665

PATIENT
  Age: 12 Year
  Sex: Male

DRUGS (6)
  1. XOPENEX [Concomitant]
     Indication: PRODUCT USED FOR UNKNOWN INDICATION
     Dosage: UNKNOWN
  2. CORTEF                             /00028601/ [Concomitant]
     Indication: PRODUCT USED FOR UNKNOWN INDICATION
     Dosage: 7.5 MG, BID
  3. DDAVP [Concomitant]
     Indication: PRODUCT USED FOR UNKNOWN INDICATION
     Dosage: 20 MCG IN MORNING, 10 MCG AT BEDTIME
  4. NORDITROPIN [Suspect]
     Indication: HYPOPITUITARISM
     Dosage: 2.8 MG, 6 TIMES PER WEEK
     Route: 058
     Dates: start: 20080804, end: 20101012
  5. FOCALIN [Concomitant]
     Indication: PRODUCT USED FOR UNKNOWN INDICATION
     Dosage: 10 MG, QD (EXTENDED RELEASE FORMULATION)
  6. SYNTHROID [Concomitant]
     Indication: PRODUCT USED FOR UNKNOWN INDICATION
     Dosage: 75 MCG, QD

REACTIONS (1)
  - CNS GERMINOMA [None]
